FAERS Safety Report 9276528 (Version 2)
Quarter: 2013Q2

REPORT INFORMATION
  Report Type: Report from Study
  Country: IN (occurrence: IN)
  Receive Date: 20130507
  Receipt Date: 20130524
  Transmission Date: 20140414
  Serious: Yes (Hospitalization)
  Sender: FDA-Public Use
  Company Number: IN-BRISTOL-MYERS SQUIBB COMPANY-18837518

PATIENT
  Age: 34 Year
  Sex: Female
  Weight: 56.6 kg

DRUGS (3)
  1. CARBOPLATIN [Suspect]
     Indication: BREAST CANCER METASTATIC
     Dosage: INTRAVENOUS INFUSION.22FEB10 TO 29JUN10?DATE OF LAST DOSE WAS 28MAR2013;WITHDRAWN AFTER 11TH CYCLE
     Route: 042
     Dates: start: 20120612
  2. GEMCITABINE HCL [Suspect]
     Indication: BREAST CANCER METASTATIC
     Dosage: INFUSION.?DATE OF LAST DOSE PRIOR TO SAE 04APR2013.?30APR2013 DOSE REDUCED TO 1000MG 3 WEEKLY.
     Route: 042
     Dates: start: 20120612
  3. BEVACIZUMAB [Suspect]
     Indication: BREAST CANCER METASTATIC
     Dosage: INTRAVENOUS INFUSION.CYCLE 12, DAY8?DATE OF LAST DOSE PRIOR TO SAE 28MAR2013
     Route: 042
     Dates: start: 20120612

REACTIONS (3)
  - Febrile neutropenia [Recovered/Resolved]
  - Streptococcal infection [Recovered/Resolved]
  - Haemoglobin decreased [Unknown]
